FAERS Safety Report 6442858-0 (Version None)
Quarter: 2009Q4

REPORT INFORMATION
  Report Type: 
  Country: None (occurrence: None)
  Receive Date: 20091117
  Receipt Date: 20090731
  Transmission Date: 20100525
  Serious: Yes (Hospitalization, Other)
  Sender: FDA-Public Use
  Company Number: US-PFIZER INC-2004116056

PATIENT
  Sex: Female
  Weight: 79.37 kg

DRUGS (2)
  1. PREMPRO [Suspect]
     Indication: HORMONE REPLACEMENT THERAPY
     Dosage: 0.625/2.5MG
     Dates: start: 19890101, end: 20000101
  2. LANOXIN [Concomitant]
     Indication: VENTRICULAR SEPTAL DEFECT
     Dosage: UNK
     Dates: start: 19520101

REACTIONS (1)
  - BREAST CANCER FEMALE [None]
